FAERS Safety Report 4295698-5 (Version None)
Quarter: 2004Q1

REPORT INFORMATION
  Report Type: 
  Country: None (occurrence: None)
  Receive Date: 20040216
  Receipt Date: 20040114
  Transmission Date: 20041129
  Serious: Yes (Life-Threatening)
  Sender: FDA-Public Use
  Company Number: US-GLAXOSMITHKLINE-A0493290A

PATIENT
  Age: 33 Year
  Sex: Male
  Weight: 83.2 kg

DRUGS (2)
  1. MEPRON [Suspect]
     Indication: LYME DISEASE
     Dosage: 750MG TWICE PER DAY
     Route: 048
     Dates: start: 20031202, end: 20040107
  2. KLONOPIN [Concomitant]
     Indication: INSOMNIA

REACTIONS (9)
  - ABDOMINAL PAIN [None]
  - ANOREXIA [None]
  - BLOOD BILIRUBIN INCREASED [None]
  - CHROMATURIA [None]
  - CONFUSIONAL STATE [None]
  - FATIGUE [None]
  - HEPATIC ENZYME INCREASED [None]
  - JAUNDICE [None]
  - NAUSEA [None]
